FAERS Safety Report 6931105-9 (Version None)
Quarter: 2010Q3

REPORT INFORMATION
  Report Type: 
  Country: None (occurrence: None)
  Receive Date: 20100818
  Receipt Date: 20080925
  Transmission Date: 20110219
  Serious: No
  Sender: FDA-Public Use
  Company Number: US-PFIZER INC-2008080717

PATIENT
  Sex: Female

DRUGS (2)
  1. LIPITOR [Suspect]
  2. CHOLESTEROL- AND TRIGLYCERIDE REDUCERS [Suspect]

REACTIONS (1)
  - LIVER DISORDER [None]
